FAERS Safety Report 20722776 (Version 2)
Quarter: 2022Q3

REPORT INFORMATION
  Report Type: Report from Study
  Country: BR (occurrence: BR)
  Receive Date: 20220419
  Receipt Date: 20220704
  Transmission Date: 20221026
  Serious: Yes (Other)
  Sender: FDA-Public Use
  Company Number: BR-ABBVIE-22K-020-4361596-00

PATIENT
  Age: 45 Year
  Sex: Female
  Weight: 83 kg

DRUGS (12)
  1. RINVOQ [Suspect]
     Active Substance: UPADACITINIB
     Indication: Rheumatoid arthritis
     Route: 048
     Dates: start: 20211020, end: 202205
  2. PREDNISOLONE [Suspect]
     Active Substance: PREDNISOLONE
     Indication: Rheumatoid arthritis
     Dosage: ABOUT 8 TO 9 YEARS AGO.
     Route: 048
     Dates: end: 202205
  3. PREDNISOLONE [Suspect]
     Active Substance: PREDNISOLONE
     Indication: Osteoarthritis
  4. TETRACYCLINE HYDROCHLORIDE [Suspect]
     Active Substance: TETRACYCLINE HYDROCHLORIDE
     Indication: Osteoarthritis
     Dosage: ABOUT 8 TO 9 YEARS AGO
     Route: 048
     Dates: end: 202205
  5. FOLIC ACID [Suspect]
     Active Substance: FOLIC ACID
     Indication: Blood uric acid
     Dosage: ABOUT 8 TO 9 YEARS AGO
     Route: 048
     Dates: end: 202205
  6. LOSARTAN [Concomitant]
     Active Substance: LOSARTAN
     Indication: Hypertension
     Dosage: ABOUT 10 YEARS AGO.
     Route: 048
  7. PANTOPRAZOLE [Concomitant]
     Active Substance: PANTOPRAZOLE
     Indication: Prophylaxis
  8. ISONIAZID [Concomitant]
     Active Substance: ISONIAZID
     Indication: Dysuria
  9. OMEPRAZOLE [Concomitant]
     Active Substance: OMEPRAZOLE
     Indication: Prophylaxis
  10. ARAVA [Concomitant]
     Active Substance: LEFLUNOMIDE
     Indication: Rheumatoid arthritis
  11. AMLODIPINE BESYLATE [Concomitant]
     Active Substance: AMLODIPINE BESYLATE
     Indication: Product used for unknown indication
     Dosage: ABOUT TWO MONTHS AGO
     Route: 048
  12. HYDROCHLOROTHIAZIDE [Concomitant]
     Active Substance: HYDROCHLOROTHIAZIDE
     Indication: Hypertension
     Dosage: ABOUT 10 YEARS AGO
     Route: 048

REACTIONS (11)
  - Cataract [Not Recovered/Not Resolved]
  - Blindness transient [Not Recovered/Not Resolved]
  - Blood pressure fluctuation [Unknown]
  - Eye pain [Not Recovered/Not Resolved]
  - Hepatic function abnormal [Recovering/Resolving]
  - Therapeutic response unexpected [Unknown]
  - Cartilage injury [Unknown]
  - Abdominal pain upper [Unknown]
  - Pain [Recovered/Resolved]
  - Swelling [Recovered/Resolved]
  - Joint swelling [Recovered/Resolved]

NARRATIVE: CASE EVENT DATE: 20220101
